FAERS Safety Report 20251983 (Version 1)
Quarter: 2021Q4

REPORT INFORMATION
  Report Type: Report from Study
  Country: US (occurrence: US)
  Receive Date: 20211229
  Receipt Date: 20211229
  Transmission Date: 20220304
  Serious: No
  Sender: FDA-Public Use
  Company Number: US-CLOVIS ONCOLOGY-CLO-2021-000788

PATIENT
  Age: 57 Year
  Sex: Female

DRUGS (1)
  1. RUBRACA [Suspect]
     Active Substance: RUCAPARIB CAMSYLATE
     Indication: Pancreatic carcinoma
     Dosage: 600 MILLIGRAM, BID
     Route: 048
     Dates: start: 20210427, end: 20210506

REACTIONS (3)
  - Diarrhoea [Recovered/Resolved]
  - Aspartate aminotransferase increased [Unknown]
  - Product use in unapproved indication [Unknown]

NARRATIVE: CASE EVENT DATE: 20210428
